FAERS Safety Report 16932463 (Version 1)
Quarter: 2019Q4

REPORT INFORMATION
  Report Type: Spontaneous
  Country: US (occurrence: US)
  Receive Date: 20191017
  Receipt Date: 20191017
  Transmission Date: 20200122
  Serious: No
  Sender: FDA-Public Use
  Company Number: US-C B FLEET CO INC-201903-US-000576

PATIENT
  Sex: Female

DRUGS (1)
  1. MONISTAT 3 3-DAY PRE-FILLED APPLICATORS [Suspect]
     Active Substance: MICONAZOLE NITRATE
     Indication: FUNGAL INFECTION
     Dosage: DOSAGE UNKNOWN
     Route: 067
     Dates: start: 20190130

REACTIONS (4)
  - Vulvovaginal burning sensation [Recovered/Resolved]
  - Condition aggravated [Recovered/Resolved]
  - Vulvovaginal pruritus [Recovered/Resolved]
  - Vulvovaginal pain [Recovered/Resolved]
